FAERS Safety Report 4288847-6 (Version None)
Quarter: 2004Q1

REPORT INFORMATION
  Report Type: 
  Country: None (occurrence: None)
  Receive Date: 20040209
  Receipt Date: 20040209
  Transmission Date: 20041129
  Serious: Yes (Life-Threatening, Hospitalization)
  Sender: FDA-Public Use
  Company Number: None

PATIENT
  Age: 72 Year
  Sex: Male
  Weight: 73.0291 kg

DRUGS (1)
  1. POLYGAM S/D [Suspect]
     Indication: IDIOPATHIC THROMBOCYTOPENIC PURPURA
     Dosage: 70 GRAMS QD INTRAVENOUS
     Route: 042
     Dates: start: 20040113, end: 20040113

REACTIONS (2)
  - INFARCTION [None]
  - MENTAL STATUS CHANGES [None]
